FAERS Safety Report 5339916-0 (Version None)
Quarter: 2007Q2

REPORT INFORMATION
  Report Type: 
  Country: None (occurrence: None)
  Receive Date: 20070529
  Receipt Date: 20070516
  Transmission Date: 20071010
  Serious: Yes (Death)
  Sender: FDA-Public Use
  Company Number: 2007EN000035

PATIENT
  Age: 48 Year
  Sex: Female

DRUGS (6)
  1. ABELCET [Suspect]
     Indication: ZYGOMYCOSIS
     Dosage: 7.5 MG/KG;QD;IV
     Route: 042
  2. MYCOPHENOLATE MOFETIL [Concomitant]
  3. TACROLIMUS [Concomitant]
  4. PREDNISONE TAB [Concomitant]
  5. IRON [Concomitant]
  6. EPOGEN [Concomitant]

REACTIONS (1)
  - ACIDOSIS [None]
